FAERS Safety Report 7350683-1 (Version None)
Quarter: 2011Q1

REPORT INFORMATION
  Report Type: 
  Country: None (occurrence: None)
  Receive Date: 20110222
  Receipt Date: 20101101
  Transmission Date: 20110831
  Serious: No
  Sender: FDA-Public Use
  Company Number: 021437

PATIENT
  Sex: Female
  Weight: 80 kg

DRUGS (8)
  1. GLYBURIDE [Concomitant]
  2. DIAZEPAM [Concomitant]
  3. POTASSIUM CHLORIDE [Concomitant]
  4. COLCHICINE [Concomitant]
  5. FLONASE [Concomitant]
  6. MAXZIDE [Concomitant]
  7. LACOSAMIDE [Suspect]
     Indication: CONVULSION
     Dosage: (150 MG BID ORAL)
     Route: 048
  8. TOPAMAX [Concomitant]

REACTIONS (1)
  - URINE COLOUR ABNORMAL [None]
